FAERS Safety Report 17685866 (Version 1)
Quarter: 2020Q2

REPORT INFORMATION
  Report Type: Spontaneous
  Country: FR (occurrence: FR)
  Receive Date: 20200420
  Receipt Date: 20200420
  Transmission Date: 20200714
  Serious: Yes (Hospitalization)
  Sender: FDA-Public Use
  Company Number: FR-MYLANLABS-2020M1039075

PATIENT
  Age: 72 Year
  Sex: Male
  Weight: 75 kg

DRUGS (11)
  1. DEXERYL                            /01579901/ [Concomitant]
     Active Substance: GLYCERIN\MINERAL OIL\PETROLATUM
     Dosage: UNK
  2. SERESTA [Concomitant]
     Active Substance: OXAZEPAM
     Dosage: UNK
  3. NOVORAPID [Concomitant]
     Active Substance: INSULIN ASPART
  4. MOVICOL [Concomitant]
     Active Substance: POLYETHYLENE GLYCOL 3350\POTASSIUM CHLORIDE\SODIUM BICARBONATE\SODIUM CHLORIDE
     Dosage: UNK
  5. CANDESARTAN CILEXETIL. [Concomitant]
     Active Substance: CANDESARTAN CILEXETIL
  6. LANTUS [Concomitant]
     Active Substance: INSULIN GLARGINE
  7. CIRCADIN [Suspect]
     Active Substance: MELATONIN
     Indication: INSOMNIA
     Dosage: 1 DOSAGE FORM, QD
     Route: 048
     Dates: start: 20190807, end: 202002
  8. COUMADINE [Concomitant]
     Active Substance: WARFARIN SODIUM
  9. ECONAZOLE. [Concomitant]
     Active Substance: ECONAZOLE NITRATE
  10. ZOLPIDEM [Concomitant]
     Active Substance: ZOLPIDEM TARTRATE
  11. SERTRALINE [Suspect]
     Active Substance: SERTRALINE HYDROCHLORIDE
     Indication: DEPRESSION
     Dosage: 25 MILLIGRAM, QD
     Route: 048
     Dates: start: 201910, end: 202002

REACTIONS (1)
  - Status epilepticus [Recovered/Resolved]

NARRATIVE: CASE EVENT DATE: 20200226
